FAERS Safety Report 15518819 (Version 1)
Quarter: 2018Q4

REPORT INFORMATION
  Report Type: Spontaneous
  Country: FR (occurrence: FR)
  Receive Date: 20181017
  Receipt Date: 20181017
  Transmission Date: 20190205
  Serious: Yes (Hospitalization)
  Sender: FDA-Public Use
  Company Number: FR-TEVA-2018-FR-965101

PATIENT
  Age: 73 Year
  Sex: Male
  Weight: 71 kg

DRUGS (1)
  1. LINEZOLIDE [Suspect]
     Active Substance: LINEZOLID
     Indication: STAPHYLOCOCCUS TEST
     Dosage: 1200 MILLIGRAM DAILY;
     Route: 048
     Dates: start: 20180813, end: 20180907

REACTIONS (2)
  - Normocytic anaemia [Recovered/Resolved]
  - Thrombocytopenia [Recovered/Resolved]

NARRATIVE: CASE EVENT DATE: 201809
